FAERS Safety Report 4723516-7 (Version None)
Quarter: 2005Q3

REPORT INFORMATION
  Report Type: 
  Country: None (occurrence: None)
  Receive Date: 20050725
  Receipt Date: 20050713
  Transmission Date: 20060218
  Serious: Yes (Hospitalization)
  Sender: FDA-Public Use
  Company Number: AU-NOVOPROD-245484

PATIENT
  Age: 4 Year
  Sex: Female
  Weight: 16 kg

DRUGS (1)
  1. NORDITROPIN SIMPLEXX [Suspect]
     Dosage: .5 MG, QD
     Route: 058
     Dates: start: 20050225

REACTIONS (2)
  - POSTOPERATIVE FEVER [None]
  - PYREXIA [None]
